FAERS Safety Report 6086824-6 (Version None)
Quarter: 2009Q1

REPORT INFORMATION
  Report Type: 
  Country: None (occurrence: None)
  Receive Date: 20090223
  Receipt Date: 20090211
  Transmission Date: 20090719
  Serious: Yes (Hospitalization)
  Sender: FDA-Public Use
  Company Number: ES-PFIZER INC-2006112084

PATIENT

DRUGS (2)
  1. SUNITINIB MALATE [Suspect]
     Indication: METASTATIC RENAL CELL CARCINOMA
     Route: 048
     Dates: start: 20060912, end: 20060914
  2. EPOETIN BETA [Concomitant]
     Route: 030
     Dates: start: 20060622

REACTIONS (2)
  - HAEMATURIA [None]
  - URINARY RETENTION [None]
